FAERS Safety Report 9464674 (Version 2)
Quarter: 2013Q3

REPORT INFORMATION
  Report Type: Spontaneous
  Country: US (occurrence: US)
  Receive Date: 20130819
  Receipt Date: 20130819
  Transmission Date: 20140515
  Serious: Yes (Hospitalization)
  Sender: FDA-Public Use
  Company Number: US-GLAXOSMITHKLINE-A0879554A

PATIENT
  Age: 38 Year
  Sex: Female
  Weight: 108.6 kg

DRUGS (7)
  1. AVANDIA [Suspect]
     Indication: DIABETES MELLITUS
     Dosage: 4MG TWICE PER DAY
     Route: 048
     Dates: start: 2006, end: 200907
  2. ZETIA [Concomitant]
  3. ZOCOR [Concomitant]
  4. ALBUTEROL [Concomitant]
  5. METFORMIN [Concomitant]
  6. AMARYL [Concomitant]
  7. LEVEMIR [Concomitant]

REACTIONS (2)
  - Ischaemic stroke [Not Recovered/Not Resolved]
  - Renal failure [Unknown]
